FAERS Safety Report 6229133-4 (Version None)
Quarter: 2009Q2

REPORT INFORMATION
  Report Type: 
  Country: None (occurrence: None)
  Receive Date: 20090615
  Receipt Date: 20090604
  Transmission Date: 20091009
  Serious: Yes (Other)
  Sender: FDA-Public Use
  Company Number: JP-ASTRAZENECA-2009SE02511

PATIENT
  Age: 85 Year
  Sex: Male

DRUGS (5)
  1. MEROPEN [Suspect]
     Indication: PSEUDOMONAS INFECTION
     Route: 041
  2. LEVOFLOXACIN [Concomitant]
     Indication: URINARY TRACT INFECTION
     Dates: start: 20071001
  3. ANTIBIOTICS [Concomitant]
     Indication: BACTERIAL INFECTION
  4. ANTIBIOTICS [Concomitant]
     Indication: ABDOMINAL WALL ABSCESS
  5. ANTIBIOTICS [Concomitant]
     Indication: INFECTIVE SPONDYLITIS

REACTIONS (1)
  - DERMATITIS EXFOLIATIVE [None]
